FAERS Safety Report 6987497-8 (Version None)
Quarter: 2010Q3

REPORT INFORMATION
  Report Type: 
  Country: None (occurrence: None)
  Receive Date: 20100916
  Receipt Date: 20100909
  Transmission Date: 20110219
  Serious: Yes (Death, Other)
  Sender: FDA-Public Use
  Company Number: PHHY2010GB60751

PATIENT
  Age: 47 Year
  Sex: Male
  Weight: 97.5 kg

DRUGS (4)
  1. CLOZAPINE [Suspect]
     Dosage: 625 MG/D
  2. AMITRIPTYLINE HCL [Concomitant]
  3. CODEINE [Concomitant]
  4. HYDROXYZINE [Concomitant]

REACTIONS (7)
  - ABDOMINAL DISTENSION [None]
  - ANTIPSYCHOTIC DRUG LEVEL INCREASED [None]
  - ARTERIOSCLEROSIS CORONARY ARTERY [None]
  - CONSTIPATION [None]
  - HYPERTENSION [None]
  - LEFT VENTRICULAR HYPERTROPHY [None]
  - MYOCARDIAL ISCHAEMIA [None]
